FAERS Safety Report 9291587 (Version 2)
Quarter: 2013Q2

REPORT INFORMATION
  Report Type: Spontaneous
  Country: AU (occurrence: AU)
  Receive Date: 20130515
  Receipt Date: 20130517
  Transmission Date: 20140414
  Serious: Yes (Other)
  Sender: FDA-Public Use
  Company Number: ZA-GILEAD-2013-0075253

PATIENT
  Sex: Male

DRUGS (3)
  1. TRUVADA [Suspect]
     Indication: PRODUCT USED FOR UNKNOWN INDICATION
  2. ATRIPLA [Suspect]
     Indication: PRODUCT USED FOR UNKNOWN INDICATION
  3. STOCRIN [Concomitant]

REACTIONS (1)
  - Blood copper abnormal [Unknown]
